FAERS Safety Report 10950360 (Version 1)
Quarter: 2015Q1

REPORT INFORMATION
  Report Type: Spontaneous
  Country: US (occurrence: None)
  Receive Date: 20150323
  Receipt Date: 20150323
  Transmission Date: 20150721
  Serious: No
  Sender: FDA-Public Use
  Company Number: None

PATIENT
  Age: 44 Year
  Sex: Male
  Weight: 86.18 kg

DRUGS (2)
  1. KLONIPIN [Concomitant]
     Active Substance: CLONAZEPAM
  2. TAMIFLU [Suspect]
     Active Substance: OSELTAMIVIR PHOSPHATE
     Indication: INFLUENZA
     Dosage: 10 PILLS
     Route: 048
     Dates: start: 20150319, end: 20150320

REACTIONS (3)
  - Rash [None]
  - Anosmia [None]
  - Ageusia [None]

NARRATIVE: CASE EVENT DATE: 20150310
